FAERS Safety Report 6577195-7 (Version None)
Quarter: 2010Q1

REPORT INFORMATION
  Report Type: 
  Country: None (occurrence: None)
  Receive Date: 20100210
  Receipt Date: 20100205
  Transmission Date: 20100710
  Serious: Yes (Death, Hospitalization, Other)
  Sender: FDA-Public Use
  Company Number: PHHY2010BE06616

PATIENT
  Age: 41 Year
  Sex: Male

DRUGS (1)
  1. CYCLOSPORINE [Suspect]
     Indication: RENAL TRANSPLANT

REACTIONS (14)
  - BACTERIAL SEPSIS [None]
  - BRAIN DEATH [None]
  - BRAIN OEDEMA [None]
  - CENTRAL NERVOUS SYSTEM LESION [None]
  - COMA SCALE ABNORMAL [None]
  - GRAND MAL CONVULSION [None]
  - HYPERTENSION [None]
  - HYPOXIA [None]
  - IMMUNOSUPPRESSANT DRUG LEVEL INCREASED [None]
  - MECHANICAL VENTILATION [None]
  - PNEUMONIA STAPHYLOCOCCAL [None]
  - PUPIL FIXED [None]
  - RENAL FAILURE ACUTE [None]
  - REVERSIBLE POSTERIOR LEUKOENCEPHALOPATHY SYNDROME [None]
